FAERS Safety Report 5616307-6 (Version None)
Quarter: 2008Q1

REPORT INFORMATION
  Report Type: 
  Country: None (occurrence: None)
  Receive Date: 20080204
  Receipt Date: 20080121
  Transmission Date: 20080703
  Serious: Yes (Other)
  Sender: FDA-Public Use
  Company Number: MC200700754

PATIENT
  Age: 55 Year
  Sex: Female
  Weight: 68.6 kg

DRUGS (14)
  1. ANGIOMAX [Suspect]
     Indication: PERCUTANEOUS CORONARY INTERVENTION
     Dosage: 52.5 MG SINGLE IV BOLUS ; 25 ML/HR, INTRAVENOUS
     Route: 042
     Dates: start: 20071219, end: 20071219
  2. ANGIOMAX [Suspect]
     Indication: PERCUTANEOUS CORONARY INTERVENTION
     Dosage: 52.5 MG SINGLE IV BOLUS ; 25 ML/HR, INTRAVENOUS
     Route: 042
     Dates: start: 20071219, end: 20071219
  3. ISOVUE-370 [Suspect]
     Dosage: INTRAVENOUS
     Route: 042
     Dates: start: 20071219
  4. HEPARIN [Concomitant]
  5. NORVASC /00972401/ (AMLODIPINE) [Concomitant]
  6. ASPIRIN [Concomitant]
  7. LIPITOR [Concomitant]
  8. LOPRESSOR [Concomitant]
  9. PLAVIX [Concomitant]
  10. COLACE (DOCUSATE SODIUM) [Concomitant]
  11. NITROGLYCERIN (GLYCERYL TRINITRATE) OINTMENT, CREAM [Concomitant]
  12. PROTONIX /01263201/ (PANTOPRAZOLE) [Concomitant]
  13. ANCEF (/00288502/ (CEFAZOLIN SODIUM) [Concomitant]
  14. ZOFRAN /00955301/ (ONDANSETRON) [Concomitant]

REACTIONS (5)
  - DRUG HYPERSENSITIVITY [None]
  - ELECTROCARDIOGRAM ST SEGMENT DEPRESSION [None]
  - MUSCLE SPASMS [None]
  - PROCEDURAL HYPOTENSION [None]
  - TACHYCARDIA [None]
